FAERS Safety Report 23682466 (Version 1)
Quarter: 2024Q1

REPORT INFORMATION
  Report Type: Spontaneous
  Country: NL (occurrence: NL)
  Receive Date: 20240328
  Receipt Date: 20240328
  Transmission Date: 20240409
  Serious: Yes (Other)
  Sender: FDA-Public Use
  Company Number: NL-Nova Laboratories Limited-2154967

PATIENT
  Age: 14 Month
  Sex: Female

DRUGS (5)
  1. PURIXAN [Suspect]
     Active Substance: MERCAPTOPURINE
  2. DABRAFENIB [Suspect]
     Active Substance: DABRAFENIB
  3. TRAMETINIB [Suspect]
     Active Substance: TRAMETINIB
  4. PREDNISONE [Suspect]
     Active Substance: PREDNISONE
  5. VINBLASTINE [Suspect]
     Active Substance: VINBLASTINE

REACTIONS (2)
  - Gastrointestinal haemorrhage [Unknown]
  - Off label use [Unknown]
